FAERS Safety Report 7582999-8 (Version None)
Quarter: 2011Q2

REPORT INFORMATION
  Report Type: 
  Country: None (occurrence: None)
  Receive Date: 20110627
  Receipt Date: 20110627
  Transmission Date: 20111010
  Serious: Yes (Life-Threatening)
  Sender: FDA-Public Use
  Company Number: None

PATIENT
  Age: 40 Year
  Sex: Male
  Weight: 92.5338 kg

DRUGS (4)
  1. SIMVASTATIN [Suspect]
     Indication: PARANOIA
  2. SIMVASTATIN [Suspect]
     Indication: PSYCHOTIC DISORDER
  3. SIMVASTATIN [Suspect]
     Indication: PSYCHOTIC DISORDER
  4. SIMVASTATIN [Suspect]
     Indication: PARANOIA

REACTIONS (4)
  - AGGRESSION [None]
  - ANGER [None]
  - SUICIDAL BEHAVIOUR [None]
  - FAMILY STRESS [None]
